FAERS Safety Report 4605731-6 (Version None)
Quarter: 2005Q1

REPORT INFORMATION
  Report Type: 
  Country: None (occurrence: None)
  Receive Date: 20050214
  Receipt Date: 20041101
  Transmission Date: 20050727
  Serious: No
  Sender: FDA-Public Use
  Company Number: USA041182735

PATIENT
  Age: 61 Year
  Sex: Male

DRUGS (8)
  1. CIALIS [Suspect]
     Dosage: 20 MG AS NEEDED
  2. COREG [Concomitant]
  3. ACCUPRIL [Concomitant]
  4. TRICOR [Concomitant]
  5. AVANDIA [Concomitant]
  6. METFORMIN HCL [Concomitant]
  7. SPIRONOLACTONE [Concomitant]
  8. LANSOPRAZOLE [Concomitant]

REACTIONS (1)
  - OEDEMA PERIPHERAL [None]
